FAERS Safety Report 8068155-8 (Version None)
Quarter: 2012Q1

REPORT INFORMATION
  Report Type: 
  Country: None (occurrence: None)
  Receive Date: 20120124
  Receipt Date: 20110829
  Transmission Date: 20120608
  Serious: No
  Sender: FDA-Public Use
  Company Number: US-AMGEN-USASP2011036639

PATIENT
  Sex: Female

DRUGS (3)
  1. CALCIUM [Concomitant]
  2. VITAMIN D [Concomitant]
     Dosage: 4000 IU, QD
  3. PROLIA [Suspect]
     Indication: OSTEOPOROSIS POSTMENOPAUSAL
     Dosage: 60 MG, Q6MO
     Dates: start: 20110301

REACTIONS (4)
  - DIZZINESS [None]
  - PARAESTHESIA [None]
  - HEADACHE [None]
  - ARTHRALGIA [None]
